FAERS Safety Report 23754985 (Version 1)
Quarter: 2024Q2

REPORT INFORMATION
  Report Type: Spontaneous
  Country: IN (occurrence: IN)
  Receive Date: 20240418
  Receipt Date: 20240418
  Transmission Date: 20240716
  Serious: Yes (Hospitalization, Other)
  Sender: FDA-Public Use
  Company Number: IN-HETERO-HET2024IN00942

PATIENT
  Age: 5 Year
  Sex: Female

DRUGS (2)
  1. LINEZOLID [Suspect]
     Active Substance: LINEZOLID
     Indication: Pneumonia necrotising
     Dosage: 10 MILLIGRAM/KILOGRAM, TID (10 MILLIGRAMS PER KILOGRAMS EVERY 8 HOURS)
     Route: 048
  2. LINEZOLID [Suspect]
     Active Substance: LINEZOLID
     Indication: Pleural effusion

REACTIONS (1)
  - Trichoglossia [Recovered/Resolved]
